FAERS Safety Report 7723361-4 (Version None)
Quarter: 2011Q3

REPORT INFORMATION
  Report Type: 
  Country: None (occurrence: None)
  Receive Date: 20110901
  Receipt Date: 20110726
  Transmission Date: 20111222
  Serious: Yes (Death)
  Sender: FDA-Public Use
  Company Number: US-KINGPHARMUSA00001-K201100882

PATIENT
  Sex: Female

DRUGS (10)
  1. LAMOTRIGINE [Concomitant]
     Dosage: 200 MG, QHS
     Dates: start: 20081202, end: 20110521
  2. DEPAKOTE ER [Suspect]
     Dosage: 500 MG, Q6H
     Dates: start: 20081202, end: 20110520
  3. SONATA [Suspect]
     Dosage: 10 MG, PRN
     Route: 048
     Dates: start: 20090817, end: 20110520
  4. SONATA [Suspect]
     Indication: MIDDLE INSOMNIA
     Dosage: 28 TABLETS, UNK
     Route: 048
     Dates: start: 20110521
  5. TYLENOL-500 [Suspect]
     Dosage: UNK
  6. DEPAKOTE ER [Suspect]
     Indication: BIPOLAR DISORDER
     Dosage: 58 TABLETS, UNK
     Dates: start: 20110521
  7. AMBIEN [Suspect]
     Dosage: 10 UNK, QHS
     Dates: start: 20091105, end: 20110520
  8. LEXAPRO [Concomitant]
     Dosage: 20 MG, QD
     Dates: start: 20091020, end: 20110521
  9. AMBIEN [Suspect]
     Dosage: UNK
     Dates: start: 20110521
  10. TYLENOL-500 [Suspect]
     Dosage: 1 BOTTLE, UNK
     Dates: start: 20110521

REACTIONS (1)
  - MULTIPLE DRUG OVERDOSE [None]
